FAERS Safety Report 7570711-8 (Version None)
Quarter: 2011Q2

REPORT INFORMATION
  Report Type: 
  Country: None (occurrence: None)
  Receive Date: 20110624
  Receipt Date: 20110614
  Transmission Date: 20111010
  Serious: Yes (Other)
  Sender: FDA-Public Use
  Company Number: US-ELI_LILLY_AND_COMPANY-US201011004467

PATIENT
  Sex: Female
  Weight: 72 kg

DRUGS (3)
  1. ASPIRIN [Concomitant]
     Dosage: 325 MG, UNK
  2. EFFIENT [Suspect]
     Indication: STENT PLACEMENT
     Dosage: 10 MG, DAILY (1/D)
     Route: 065
     Dates: start: 20100702
  3. ASPIRIN [Concomitant]
     Dosage: 81 MG, UNK

REACTIONS (4)
  - DIZZINESS [None]
  - CORONARY ARTERIAL STENT INSERTION [None]
  - CONTUSION [None]
  - PALPITATIONS [None]
